FAERS Safety Report 6724617-4 (Version None)
Quarter: 2010Q2

REPORT INFORMATION
  Report Type: 
  Country: None (occurrence: None)
  Receive Date: 20100513
  Receipt Date: 20100429
  Transmission Date: 20101027
  Serious: Yes (Other)
  Sender: FDA-Public Use
  Company Number: BE-ELI_LILLY_AND_COMPANY-BE201003002964

PATIENT
  Sex: Female
  Weight: 56 kg

DRUGS (18)
  1. FORTEO [Suspect]
     Dosage: UNK, UNK
     Dates: start: 20100219, end: 20100318
  2. COZAAR [Concomitant]
     Dosage: 10 MG, 2/D
     Route: 065
  3. LASIX [Concomitant]
     Dosage: UNK, UNKNOWN
     Route: 065
  4. URFADYN [Concomitant]
     Indication: CYSTITIS
     Dosage: 1 D/F, DAILY (1/D)
     Route: 065
  5. LYRICA [Concomitant]
     Dosage: UNK, UNKNOWN
     Route: 065
  6. MIRTAZAPINE [Concomitant]
     Dosage: 15 MG, DAILY (1/D)
     Route: 065
  7. PLAVIX [Concomitant]
     Dosage: 75 MG, DAILY (1/D)
     Route: 065
  8. AMLOR [Concomitant]
  9. NEXIUM [Concomitant]
     Dosage: 40 MG, UNKNOWN
     Route: 065
  10. DAFALGAN [Concomitant]
  11. STEOVIT D3 [Concomitant]
  12. D-VITAL CALCIUM [Concomitant]
  13. LEVOTHYROXINE SODIUM [Concomitant]
     Dosage: 50 MG, UNK
  14. NULYTELY [Concomitant]
     Dosage: UNK, DAILY (1/D)
  15. FOLAVIT [Concomitant]
     Dosage: 0.4 X 3/W
  16. SECTRAL [Concomitant]
     Dosage: 400 MG, UNKNOWN
     Route: 065
  17. LIPITOR [Concomitant]
     Dosage: 20 MG, UNKNOWN
     Route: 065
  18. MAGNESPASMYL [Concomitant]

REACTIONS (5)
  - CYSTITIS [None]
  - DIARRHOEA [None]
  - HOT FLUSH [None]
  - HYPERTENSIVE CRISIS [None]
  - VERTIGO [None]
